FAERS Safety Report 20429610 (Version 1)
Quarter: 2022Q1

REPORT INFORMATION
  Report Type: Report from Study
  Country: FR (occurrence: FR)
  Receive Date: 20220204
  Receipt Date: 20220204
  Transmission Date: 20220424
  Serious: Yes (Other)
  Sender: FDA-Public Use
  Company Number: FR-SERVIER-S19006434

PATIENT

DRUGS (7)
  1. ONCASPAR [Suspect]
     Active Substance: PEGASPARGASE
     Indication: Acute lymphocytic leukaemia
     Dosage: 750 IU, QD
     Route: 042
     Dates: start: 20190320, end: 20190430
  2. DEXAMETHASONE [Suspect]
     Active Substance: DEXAMETHASONE
     Indication: Acute lymphocytic leukaemia
     Dosage: 3.5 MG, QD, D1 TO D5, D29 TO D33, D57 TO D61
     Route: 042
     Dates: start: 20190313, end: 20190525
  3. TN UNSPECIFIED [Concomitant]
     Indication: Acute lymphocytic leukaemia
     Dosage: 30 MG, QD, D21, D29 TO D49, D57 TO D77
     Route: 048
     Dates: start: 20190313
  4. VINCRISTINE [Suspect]
     Active Substance: VINCRISTINE
     Indication: Acute lymphocytic leukaemia
     Dosage: 0.9 MG, QD, D1, D8, D29, D36, D57, D64
     Route: 042
     Dates: start: 20190313
  5. METHOTREXATE [Suspect]
     Active Substance: METHOTREXATE
     Indication: Acute lymphocytic leukaemia
     Dosage: 10 MG, QD,  D2, D30, D58
     Route: 037
     Dates: start: 20190514
  6. METHOTREXATE [Suspect]
     Active Substance: METHOTREXATE
     Dosage: 15 MG, QD, D8, D15, D22, D36, D43, D50, D64, D71, D78
     Route: 048
     Dates: start: 20190320
  7. TN UNSPECIFIED [Concomitant]
     Indication: Product used for unknown indication
     Dosage: 1 G
     Route: 042

REACTIONS (3)
  - Malaise [Recovered/Resolved]
  - Overdose [Recovered/Resolved]
  - Product preparation issue [Recovered/Resolved]

NARRATIVE: CASE EVENT DATE: 20190607
